FAERS Safety Report 20875716 (Version 2)
Quarter: 2023Q2

REPORT INFORMATION
  Report Type: Spontaneous
  Country: US (occurrence: US)
  Receive Date: 20220526
  Receipt Date: 20230407
  Transmission Date: 20230722
  Serious: Yes (Other)
  Sender: FDA-Public Use
  Company Number: US-BRISTOL-MYERS SQUIBB COMPANY-2022-043060

PATIENT
  Age: 65 Year
  Sex: Female

DRUGS (1)
  1. REVLIMID [Suspect]
     Active Substance: LENALIDOMIDE
     Indication: Plasma cell myeloma
     Dosage: TAKE 1 WHOLE CAPSULE BY MOUTH.
     Route: 048
     Dates: start: 20220419

REACTIONS (7)
  - Pain [Unknown]
  - Oedema peripheral [Unknown]
  - Laryngitis [Unknown]
  - Neuropathy peripheral [Unknown]
  - Weight decreased [Unknown]
  - Dry mouth [Unknown]
  - Platelet count decreased [Unknown]
